FAERS Safety Report 8158705-5 (Version None)
Quarter: 2012Q1

REPORT INFORMATION
  Report Type: 
  Country: None (occurrence: None)
  Receive Date: 20120217
  Receipt Date: 20120207
  Transmission Date: 20120608
  Serious: Yes (Life-Threatening, Hospitalization)
  Sender: FDA-Public Use
  Company Number: DSA_48114_2011

PATIENT
  Age: 39 Year
  Sex: Male

DRUGS (1)
  1. DILTIAZEM HCL [Suspect]
     Indication: PRINZMETAL ANGINA
     Dosage: (100 MG QD ORAL)
     Route: 048
     Dates: start: 20100820, end: 20100908

REACTIONS (3)
  - ELECTROCARDIOGRAM ST SEGMENT ELEVATION [None]
  - CONDITION AGGRAVATED [None]
  - BRUGADA SYNDROME [None]
